FAERS Safety Report 20364502 (Version 3)
Quarter: 2022Q1

REPORT INFORMATION
  Report Type: Spontaneous
  Country: AT (occurrence: AT)
  Receive Date: 20220122
  Receipt Date: 20220210
  Transmission Date: 20220423
  Serious: Yes (Other)
  Sender: FDA-Public Use
  Company Number: None

PATIENT
  Age: 68 Year
  Sex: Female

DRUGS (1)
  1. IMATINIB [Suspect]
     Active Substance: IMATINIB
     Indication: Chloroma
     Dosage: 400 MG, QD
     Route: 065

REACTIONS (3)
  - Drug resistance [Unknown]
  - Oedema [Unknown]
  - Product use in unapproved indication [Unknown]
